FAERS Safety Report 16977437 (Version 2)
Quarter: 2020Q1

REPORT INFORMATION
  Report Type: Report from Study
  Country: US (occurrence: US)
  Receive Date: 20191031
  Receipt Date: 20200122
  Transmission Date: 20200409
  Serious: Yes (Other)
  Sender: FDA-Public Use
  Company Number: US-009507513-1910USA015136

PATIENT
  Age: 19 Year
  Sex: Female
  Weight: 54.88 kg

DRUGS (1)
  1. IMPLANON [Suspect]
     Active Substance: ETONOGESTREL
     Indication: CONTRACEPTION
     Dosage: 68MILLIGRAM, 1 IMPLANT IN THE LEFT ARM/1 ROD  EVERY 3 YEARS
     Route: 059
     Dates: start: 20191022, end: 20191022

REACTIONS (2)
  - Tremor [Recovered/Resolved]
  - Syncope [Recovered/Resolved]

NARRATIVE: CASE EVENT DATE: 20191022
